FAERS Safety Report 6391812-6 (Version None)
Quarter: 2009Q4

REPORT INFORMATION
  Report Type: 
  Country: None (occurrence: None)
  Receive Date: 20091007
  Receipt Date: 20090929
  Transmission Date: 20100525
  Serious: Yes (Other)
  Sender: FDA-Public Use
  Company Number: US-BAYER-200920689NA

PATIENT
  Age: 36 Year
  Sex: Female
  Weight: 59 kg

DRUGS (1)
  1. MIRENA [Suspect]
     Indication: CONTRACEPTION
     Route: 015
     Dates: start: 20070925, end: 20090507

REACTIONS (4)
  - ACNE [None]
  - IRRITABILITY [None]
  - UTERINE RUPTURE [None]
  - VAGINAL HAEMORRHAGE [None]
